FAERS Safety Report 4302305-1 (Version None)
Quarter: 2004Q1

REPORT INFORMATION
  Report Type: 
  Country: None (occurrence: None)
  Receive Date: 20040220
  Receipt Date: 20040206
  Transmission Date: 20041129
  Serious: Yes (Life-Threatening)
  Sender: FDA-Public Use
  Company Number: 2004008480

PATIENT
  Age: 46 Year
  Sex: Female
  Weight: 60 kg

DRUGS (29)
  1. SORTIS (ATORVASTATIN) [Suspect]
     Indication: HYPERLIPIDAEMIA
     Dosage: 10 MG (DAILY), ORAL
     Route: 048
  2. PROPOFOL [Suspect]
     Indication: ILL-DEFINED DISORDER
  3. AMIODARONE HCL [Suspect]
     Indication: ILL-DEFINED DISORDER
  4. FLUNITRAZEPAM (FLUNITRAZEPAM) [Suspect]
     Indication: ILL-DEFINED DISORDER
  5. SUFENTANIL CITRATE [Concomitant]
  6. LIDOCAINE [Concomitant]
  7. ESOMEPRAZOLE (ESOMEPRAZOLE) [Concomitant]
  8. PIRITRAMIDE (PIRITRAMIDE) [Concomitant]
  9. CAPTOPRIL [Concomitant]
  10. RAMIPRIL [Concomitant]
  11. DEXAMETHASONE [Concomitant]
  12. ETOMIDATE (ETOMIDATE) [Concomitant]
  13. PANCURONIUM BROMIDE [Concomitant]
  14. CEFOTIAM (CEFOTIAM) [Concomitant]
  15. MOLSIDOMINE (MOLSIDOMINE) [Concomitant]
  16. ISOSORBIDE DINITRATE [Concomitant]
  17. ACETYLSALICYLIC ACID SRT [Concomitant]
  18. BISOPROLOL FUMARATE [Concomitant]
  19. METOPROLOL (METOPROLOL) [Concomitant]
  20. FUROSEMIDE [Concomitant]
  21. ENOXIMONE (ENOXIMONE) [Concomitant]
  22. PIPERACILLIN [Concomitant]
  23. TAZOBACTAM [Concomitant]
  24. PARACETAMOL (PARACETAMOL) [Concomitant]
  25. NITROGLYCERIN [Concomitant]
  26. DOPAMINE HCL [Concomitant]
  27. EPINEPHRINE [Concomitant]
  28. NOREPINEPHRINE (NOREPINEPHRINE) [Concomitant]
  29. DOBUTAMINE (DOBUTAMINE) [Concomitant]

REACTIONS (7)
  - ARRHYTHMIA [None]
  - BLOOD CREATINE PHOSPHOKINASE INCREASED [None]
  - BLOOD LACTATE DEHYDROGENASE INCREASED [None]
  - C-REACTIVE PROTEIN INCREASED [None]
  - DRUG INTERACTION [None]
  - MUSCLE DISORDER [None]
  - MYOGLOBIN BLOOD INCREASED [None]
